FAERS Safety Report 4388676-9 (Version None)
Quarter: 2004Q2

REPORT INFORMATION
  Report Type: 
  Country: None (occurrence: None)
  Receive Date: 20040624
  Receipt Date: 20040621
  Transmission Date: 20050107
  Serious: No
  Sender: FDA-Public Use
  Company Number: TPA2004A00706

PATIENT
  Age: 70 Year
  Sex: Female
  Weight: 97.5234 kg

DRUGS (3)
  1. ACTOS [Suspect]
     Indication: DIABETES MELLITUS
     Dosage: 30 MG, 1 IN 1 D, PER ORAL
     Route: 048
  2. HUMALOG [Suspect]
     Dosage: SLIDING SCALE, 3 IN 1 D,
  3. HUMULIN N [Suspect]
     Dosage: 15 IU, 10:00 PM Q NIGHT,

REACTIONS (5)
  - BODY HEIGHT DECREASED [None]
  - CATARACT [None]
  - EYE HAEMORRHAGE [None]
  - OSTEOPOROSIS [None]
  - VISUAL DISTURBANCE [None]
